FAERS Safety Report 16688716 (Version 1)
Quarter: 2019Q4

REPORT INFORMATION
  Report Type: Spontaneous
  Country: US (occurrence: US)
  Receive Date: 20190809
  Receipt Date: 20190809
  Transmission Date: 20200122
  Serious: Yes (Disabling)
  Sender: FDA-Public Use
  Company Number: None

PATIENT
  Age: 62 Year
  Sex: Female
  Weight: 48.15 kg

DRUGS (6)
  1. NAPROXEN SODIUM. [Concomitant]
     Active Substance: NAPROXEN SODIUM
  2. MARIJUANA [Concomitant]
     Active Substance: CANNABIS SATIVA SUBSP. INDICA TOP
  3. TRAZODONE HYDROCHLORIDE 100MG TABLET [Suspect]
     Active Substance: TRAZODONE HYDROCHLORIDE
     Indication: INSOMNIA
     Dosage: ?          QUANTITY:1 TABLET(S);?
     Route: 048
  4. TIZANIDINE. [Concomitant]
     Active Substance: TIZANIDINE
  5. TRAZODONE HYDROCHLORIDE 100MG TABLET [Suspect]
     Active Substance: TRAZODONE HYDROCHLORIDE
     Indication: DEPRESSION
     Dosage: ?          QUANTITY:1 TABLET(S);?
     Route: 048
  6. TRAZODONE HYDROCHLORIDE 100MG TABLET [Suspect]
     Active Substance: TRAZODONE HYDROCHLORIDE
     Indication: ANXIETY
     Dosage: ?          QUANTITY:1 TABLET(S);?
     Route: 048

REACTIONS (22)
  - Abdominal pain upper [None]
  - Tremor [None]
  - Fracture [None]
  - Anxiety [None]
  - Diarrhoea [None]
  - Product substitution issue [None]
  - Vomiting [None]
  - Nausea [None]
  - Drug withdrawal syndrome [None]
  - Constipation [None]
  - Cyst [None]
  - Weight decreased [None]
  - Fall [None]
  - Dysphagia [None]
  - Syncope [None]
  - Dizziness [None]
  - Myalgia [None]
  - Panic reaction [None]
  - Pyrexia [None]
  - Retching [None]
  - Mood swings [None]
  - Headache [None]

NARRATIVE: CASE EVENT DATE: 20190808
